FAERS Safety Report 5044207-1 (Version None)
Quarter: 2006Q3

REPORT INFORMATION
  Report Type: 
  Country: None (occurrence: None)
  Receive Date: 20060706
  Receipt Date: 20060327
  Transmission Date: 20061208
  Serious: Yes (Hospitalization)
  Sender: FDA-Public Use
  Company Number: US-ROCHE-442357

PATIENT
  Age: 48 Year
  Sex: Female
  Weight: 81.6 kg

DRUGS (4)
  1. PEGASYS [Suspect]
     Dosage: FORM WAS REPORTED AS PREFILLED SYRINGES. STRENGTH REPORTED AS 180MCG/0.5ML SYR.
     Route: 058
     Dates: start: 20060122
  2. COPEGUS [Suspect]
     Route: 048
     Dates: start: 20060122
  3. APRI [Concomitant]
     Dosage: BIRTH CONTROL PILLS.
     Dates: start: 20060221
  4. PROTONIX [Concomitant]

REACTIONS (4)
  - FATIGUE [None]
  - HAEMOGLOBIN DECREASED [None]
  - INSOMNIA [None]
  - MENORRHAGIA [None]
